FAERS Safety Report 10217405 (Version 2)
Quarter: 2014Q2

REPORT INFORMATION
  Report Type: Spontaneous
  Country: CA (occurrence: CA)
  Receive Date: 20140604
  Receipt Date: 20140606
  Transmission Date: 20141212
  Serious: Yes (Other)
  Sender: FDA-Public Use
  Company Number: CA-PFIZER INC-2014151412

PATIENT
  Sex: Female

DRUGS (1)
  1. CHAMPIX [Suspect]
     Dosage: UNK
     Dates: start: 201403

REACTIONS (2)
  - Tooth abscess [Not Recovered/Not Resolved]
  - Gingival bleeding [Not Recovered/Not Resolved]
